FAERS Safety Report 14416834 (Version 1)
Quarter: 2018Q1

REPORT INFORMATION
  Report Type: Spontaneous
  Country: US (occurrence: US)
  Receive Date: 20180119
  Receipt Date: 20180119
  Transmission Date: 20180509
  Serious: Yes (Hospitalization)
  Sender: FDA-Public Use
  Company Number: None

PATIENT
  Age: 55 Year
  Sex: Male

DRUGS (10)
  1. LEVOTHYROXINE. [Concomitant]
     Active Substance: LEVOTHYROXINE
  2. MULTIVITAMIN [Concomitant]
     Active Substance: VITAMINS
  3. PROCHLORPERAZINE. [Concomitant]
     Active Substance: PROCHLORPERAZINE
  4. CAPECITABINE. [Concomitant]
     Active Substance: CAPECITABINE
  5. METOPROLOL TARTRATE. [Concomitant]
     Active Substance: METOPROLOL TARTRATE
  6. OXYCODONE [Concomitant]
     Active Substance: OXYCODONE
  7. ONDANSETRON [Concomitant]
     Active Substance: ONDANSETRON
  8. LORAZEPAM. [Concomitant]
     Active Substance: LORAZEPAM
  9. ROLAPITANT [Suspect]
     Active Substance: ROLAPITANT
     Indication: PREMEDICATION
     Route: 042
     Dates: start: 20180103, end: 20180103
  10. TRAMADOL. [Concomitant]
     Active Substance: TRAMADOL

REACTIONS (9)
  - Hypotension [None]
  - Asthenia [None]
  - Hypoxia [None]
  - Blood lactic acid increased [None]
  - Rash erythematous [None]
  - Erythema [None]
  - Chest pain [None]
  - Papule [None]
  - Dyspnoea [None]

NARRATIVE: CASE EVENT DATE: 20180103
